FAERS Safety Report 17301803 (Version 1)
Quarter: 2020Q1

REPORT INFORMATION
  Report Type: Spontaneous
  Country: GB (occurrence: GB)
  Receive Date: 20200122
  Receipt Date: 20200122
  Transmission Date: 20200409
  Serious: Yes (Hospitalization, Disabling, Other)
  Sender: FDA-Public Use
  Company Number: NVSC2020GB011050

PATIENT
  Age: 59 Year
  Sex: Female
  Weight: 83 kg

DRUGS (1)
  1. ROSUVASTATIN CALCIUM. [Suspect]
     Active Substance: ROSUVASTATIN CALCIUM
     Indication: TRANSIENT ISCHAEMIC ATTACK
     Dosage: 5 MG, QD
     Route: 048
     Dates: start: 20180621, end: 20180705

REACTIONS (8)
  - Dissociation [Recovering/Resolving]
  - Dizziness [Recovering/Resolving]
  - Agitation [Recovering/Resolving]
  - Abnormal behaviour [Recovering/Resolving]
  - Disorientation [Unknown]
  - Amnesia [Recovering/Resolving]
  - Confusional state [Recovering/Resolving]
  - Obsessive-compulsive symptom [Unknown]

NARRATIVE: CASE EVENT DATE: 20180626
